FAERS Safety Report 6692420-X (Version None)
Quarter: 2010Q2

REPORT INFORMATION
  Report Type: 
  Country: None (occurrence: None)
  Receive Date: 20100414
  Receipt Date: 20100402
  Transmission Date: 20101027
  Serious: Yes (Other)
  Sender: FDA-Public Use
  Company Number: THYM-1001309

PATIENT
  Age: 45 Year
  Sex: Female
  Weight: 83 kg

DRUGS (6)
  1. THYMOGLOBULIN [Suspect]
     Indication: IMMUNOSUPPRESSION
     Dosage: 125 MG, QD, INTRAVENOUS
     Route: 042
     Dates: start: 20091118, end: 20091119
  2. CELLCEPT [Concomitant]
  3. SOLUPRED (PREDNISOLONE SODIUM SULFOBENZOATE) [Concomitant]
  4. OMEPRAZOLE [Concomitant]
  5. POLARAMINE (DEXCHOLORPHENIRAMINE MALEATE) [Concomitant]
  6. FUROSEMIDE [Concomitant]

REACTIONS (2)
  - ACUTE RESPIRATORY DISTRESS SYNDROME [None]
  - CYTOKINE RELEASE SYNDROME [None]
